FAERS Safety Report 6092515-8 (Version None)
Quarter: 2009Q1

REPORT INFORMATION
  Report Type: 
  Country: None (occurrence: None)
  Receive Date: 20090223
  Receipt Date: 20090223
  Transmission Date: 20090719
  Serious: No
  Sender: FDA-Public Use
  Company Number: None

PATIENT
  Sex: Female
  Weight: 101.82 kg

DRUGS (8)
  1. INDOMETHACIN [Suspect]
     Dosage: 75 MG CAPSULE SA 75 MG QD ORAL
     Route: 048
     Dates: start: 20090123, end: 20090220
  2. ATIVAN [Concomitant]
  3. BENADRYL [Concomitant]
  4. HYDROCHLOROTHIAZIDE [Concomitant]
  5. METHYLPREDNISOLONE [Concomitant]
  6. PREMARIN [Concomitant]
  7. PROCARDIA XL [Concomitant]
  8. TENORMIN [Concomitant]

REACTIONS (1)
  - GASTROINTESTINAL DISORDER [None]
